FAERS Safety Report 16047980 (Version 1)
Quarter: 2019Q1

REPORT INFORMATION
  Report Type: Spontaneous
  Country: JP (occurrence: JP)
  Receive Date: 20190307
  Receipt Date: 20190307
  Transmission Date: 20190418
  Serious: Yes (Death, Other)
  Sender: FDA-Public Use
  Company Number: JP-009507513-1903JPN000305J

PATIENT

DRUGS (1)
  1. KEYTRUDA [Suspect]
     Active Substance: PEMBROLIZUMAB
     Indication: NON-SMALL CELL LUNG CANCER
     Dosage: UNK
     Route: 041

REACTIONS (12)
  - Pustular psoriasis [Unknown]
  - Meningitis [Unknown]
  - Enterocolitis [Unknown]
  - Myocardial infarction [Fatal]
  - Malignant neoplasm progression [Unknown]
  - Cholangitis [Unknown]
  - Interstitial lung disease [Unknown]
  - Eastern Cooperative Oncology Group performance status worsened [Unknown]
  - Rash [Unknown]
  - Hypothyroidism [Unknown]
  - Hyperthyroidism [Unknown]
  - Pruritus [Unknown]
